FAERS Safety Report 7776854-8 (Version None)
Quarter: 2011Q3

REPORT INFORMATION
  Report Type: 
  Country: None (occurrence: None)
  Receive Date: 20110926
  Receipt Date: 20110913
  Transmission Date: 20111222
  Serious: Yes (Death, Hospitalization, Other)
  Sender: FDA-Public Use
  Company Number: ES-ELI_LILLY_AND_COMPANY-ES201107003598

PATIENT
  Sex: Female

DRUGS (11)
  1. ACETAMINOPHEN [Concomitant]
     Dosage: UNK, PRN
  2. CALCIUM CARBONATE [Concomitant]
  3. OMEPRAZOLE [Concomitant]
     Dosage: 20 MG, QD
  4. ASPIRIN [Concomitant]
     Dosage: 150 MG, QD
  5. PREDNISONE [Concomitant]
     Dosage: 12.5 MG, QD
  6. FORTEO [Suspect]
     Indication: OSTEOPOROSIS
     Dosage: 20 UG, QD
     Route: 058
     Dates: start: 20110316
  7. LEDERFOLIN [Concomitant]
     Dosage: 15 MG, WEEKLY (1/W)
  8. VITAMIN D [Concomitant]
  9. PREGABALIN [Concomitant]
     Dosage: 75 MG, BID
  10. METHOTREXATE SODIUM [Concomitant]
     Dosage: 20 MG, WEEKLY (1/W)
     Route: 058
  11. TRAMADOL [Concomitant]
     Dosage: UNK, PRN

REACTIONS (8)
  - PNEUMONIA CYTOMEGALOVIRAL [None]
  - ASPIRATION BRONCHIAL [None]
  - PNEUMONIA [None]
  - FUNGAL INFECTION [None]
  - RESPIRATORY FAILURE [None]
  - BRONCHOSPASM [None]
  - RIB FRACTURE [None]
  - AORTIC ELONGATION [None]
